FAERS Safety Report 7768227-9 (Version None)
Quarter: 2011Q3

REPORT INFORMATION
  Report Type: 
  Country: None (occurrence: None)
  Receive Date: 20110922
  Receipt Date: 20110922
  Transmission Date: 20111222
  Serious: Yes (Life-Threatening, Disabling)
  Sender: FDA-Public Use
  Company Number: None

PATIENT
  Age: 6 Year
  Sex: Male
  Weight: 22.679 kg

DRUGS (1)
  1. SINGULAIR [Suspect]
     Indication: ECZEMA
     Dosage: 4MG
     Route: 048
     Dates: start: 20060112, end: 20110905

REACTIONS (9)
  - SCREAMING [None]
  - VISUAL IMPAIRMENT [None]
  - FIGHT IN SCHOOL [None]
  - AGGRESSION [None]
  - OPPOSITIONAL DEFIANT DISORDER [None]
  - CONDUCT DISORDER [None]
  - ANGER [None]
  - PHYSICAL ASSAULT [None]
  - IMPULSIVE BEHAVIOUR [None]
